FAERS Safety Report 6558540-5 (Version None)
Quarter: 2010Q1

REPORT INFORMATION
  Report Type: 
  Country: None (occurrence: None)
  Receive Date: 20100129
  Receipt Date: 20100122
  Transmission Date: 20100710
  Serious: Yes (Other)
  Sender: FDA-Public Use
  Company Number: DE-JNJFOC-20091201761

PATIENT
  Age: 40 Year
  Sex: Female

DRUGS (6)
  1. RISPERDAL [Suspect]
     Indication: SCHIZOPHRENIA
     Route: 048
     Dates: end: 20091207
  2. RISPERDAL [Suspect]
     Dosage: DOSE: 2 MG - 4 MG A DAY
     Route: 048
     Dates: end: 20091207
  3. CALCIUM [Concomitant]
     Route: 048
  4. POTASSIUM [Concomitant]
     Route: 048
  5. SULTAMICILLIN [Concomitant]
     Route: 048
  6. SPASMO URGENIN [Concomitant]
     Route: 048

REACTIONS (2)
  - URETHRAL MEATUS STENOSIS [None]
  - URINARY RETENTION [None]
